FAERS Safety Report 20770198 (Version 1)
Quarter: 2022Q2

REPORT INFORMATION
  Report Type: Spontaneous
  Country: US (occurrence: US)
  Receive Date: 20220429
  Receipt Date: 20220429
  Transmission Date: 20220721
  Serious: No
  Sender: FDA-Public Use
  Company Number: US-PFIZER INC-202200628792

PATIENT
  Age: 80 Year
  Sex: Female
  Weight: 63.5 kg

DRUGS (3)
  1. PAXLOVID [Suspect]
     Active Substance: NIRMATRELVIR\RITONAVIR
     Indication: COVID-19
     Dosage: 3 TABLETS TWICE A DAY FOR 5 DAYS
     Dates: start: 20220411, end: 20220416
  2. VITAMIN D COMPLEX [Concomitant]
     Dosage: UNK
  3. FLONASE SENSIMIST ALLERGY RELIEF [Concomitant]
     Active Substance: FLUTICASONE FUROATE
     Dosage: UNK

REACTIONS (8)
  - Nasopharyngitis [Unknown]
  - Chills [Unknown]
  - Rhinorrhoea [Unknown]
  - Head discomfort [Unknown]
  - Pain [Unknown]
  - Fatigue [Recovering/Resolving]
  - Respiratory disorder [Unknown]
  - Disease recurrence [Unknown]

NARRATIVE: CASE EVENT DATE: 20220419
